FAERS Safety Report 9272835 (Version 1)
Quarter: 2013Q2

REPORT INFORMATION
  Report Type: Report from Study
  Country: AU (occurrence: AU)
  Receive Date: 20130506
  Receipt Date: 20130506
  Transmission Date: 20140414
  Serious: Yes (Hospitalization, Other)
  Sender: FDA-Public Use
  Company Number: PHHY2013AU038997

PATIENT
  Sex: Female

DRUGS (4)
  1. ACLASTA [Suspect]
     Indication: OSTEOPOROSIS
     Dosage: 5 MG, UNK
     Route: 042
     Dates: start: 20120403
  2. LIPITOR [Concomitant]
     Dosage: 40 MG, UNK
  3. ZANIDIP [Concomitant]
     Dosage: 10 MG, UNK
  4. OSTELIN [Concomitant]
     Dosage: 1000 U, BID

REACTIONS (3)
  - Hypercalcaemia [Unknown]
  - Dehydration [Unknown]
  - Spinal compression fracture [Unknown]
